FAERS Safety Report 16498008 (Version 1)
Quarter: 2019Q2

REPORT INFORMATION
  Report Type: Spontaneous
  Country: US (occurrence: US)
  Receive Date: 20190628
  Receipt Date: 20190628
  Transmission Date: 20190711
  Serious: No
  Sender: FDA-Public Use
  Company Number: US-BAUSCH-BL-2019-017219

PATIENT
  Sex: Female

DRUGS (2)
  1. DIURIL [Suspect]
     Active Substance: CHLOROTHIAZIDE
     Indication: HYPERCALCIURIA
     Dosage: STARTED ABOUT 1.5 YEARS AGO
     Route: 048
  2. DIURIL [Suspect]
     Active Substance: CHLOROTHIAZIDE
     Indication: PRODUCT USE IN UNAPPROVED INDICATION

REACTIONS (2)
  - Fluid retention [Not Recovered/Not Resolved]
  - Product use in unapproved indication [Unknown]

NARRATIVE: CASE EVENT DATE: 20190607
